FAERS Safety Report 6902487-9 (Version None)
Quarter: 2010Q3

REPORT INFORMATION
  Report Type: 
  Country: None (occurrence: None)
  Receive Date: 20100802
  Receipt Date: 20100802
  Transmission Date: 20110219
  Serious: Yes (Other)
  Sender: FDA-Public Use
  Company Number: None

PATIENT
  Age: 55 Year
  Sex: Male
  Weight: 88.4514 kg

DRUGS (2)
  1. IBUPROFEN [Suspect]
     Indication: BACK PAIN
     Dosage: 400MG - OCCASIONAL USE ONLY 2X EACH DAY PO
     Route: 048
     Dates: start: 20100401, end: 20100730
  2. IBUPROFEN [Suspect]
     Indication: MYALGIA
     Dosage: 400MG - OCCASIONAL USE ONLY 2X EACH DAY PO
     Route: 048
     Dates: start: 20100401, end: 20100730

REACTIONS (4)
  - ABDOMINAL PAIN UPPER [None]
  - DIARRHOEA [None]
  - FLATULENCE [None]
  - PRODUCT QUALITY ISSUE [None]
